FAERS Safety Report 4854315-3 (Version None)
Quarter: 2005Q4

REPORT INFORMATION
  Report Type: 
  Country: None (occurrence: None)
  Receive Date: 20051213
  Receipt Date: 20051213
  Transmission Date: 20060501
  Serious: Yes (Hospitalization)
  Sender: FDA-Public Use
  Company Number: None

PATIENT
  Age: 47 Year
  Sex: Male
  Weight: 127.0072 kg

DRUGS (14)
  1. LISINOPRIL [Suspect]
     Indication: HYPERTENSION
     Dosage: 20 MG DAILY PO
     Route: 048
     Dates: start: 20050316, end: 20050913
  2. METOPROLOL SUCCINATE [Concomitant]
  3. SIMVASTATIN [Concomitant]
  4. DOCUSATE [Concomitant]
  5. HYDROCODONE BITARTRATE + ACETAMINOPHEN [Concomitant]
  6. PREDNISONE TAB [Concomitant]
  7. GLYBURIDE [Concomitant]
  8. CLONIDINE [Concomitant]
  9. CALCIUM CARBONATE [Concomitant]
  10. ALEDRONATE [Concomitant]
  11. OMEPRAZOLE [Concomitant]
  12. FUROSEMIDE [Concomitant]
  13. ISOSORBIDE MONONITRATE [Concomitant]
  14. NITROGLYCERIN [Concomitant]

REACTIONS (1)
  - ANGIONEUROTIC OEDEMA [None]
